FAERS Safety Report 6300637-9 (Version None)
Quarter: 2009Q3

REPORT INFORMATION
  Report Type: 
  Country: None (occurrence: None)
  Receive Date: 20090803
  Receipt Date: 20090720
  Transmission Date: 20100115
  Serious: Yes (Life-Threatening, Other)
  Sender: FDA-Public Use
  Company Number: ADR7882009

PATIENT
  Age: 67 Year
  Sex: Female

DRUGS (3)
  1. ALENDRONIC ACID                (MFR. UNKNOWN) [Suspect]
     Indication: OSTEOPOROSIS
     Dosage: 70MG/WEEK ORAL USE
     Route: 048
     Dates: start: 20080625
  2. ADCAL-D3 [Concomitant]
  3. ARIMIDEX [Concomitant]

REACTIONS (1)
  - APLASTIC ANAEMIA [None]
